FAERS Safety Report 6332327-0 (Version None)
Quarter: 2009Q3

REPORT INFORMATION
  Report Type: 
  Country: None (occurrence: None)
  Receive Date: 20090828
  Receipt Date: 20090821
  Transmission Date: 20100115
  Serious: Yes (Hospitalization, Other)
  Sender: FDA-Public Use
  Company Number: GB-BRISTOL-MYERS SQUIBB COMPANY-14084677

PATIENT
  Age: 23 Year
  Sex: Female

DRUGS (5)
  1. EFAVIRENZ [Interacting]
     Indication: HIV INFECTION
     Dates: start: 20040101
  2. IMPLANON [Interacting]
     Indication: CONTRACEPTION
     Dates: start: 20030201
  3. ZIDOVUDINE [Suspect]
     Indication: HIV INFECTION
     Dates: start: 20040101
  4. LAMIVUDINE [Suspect]
     Indication: HIV INFECTION
     Dates: start: 20040101
  5. BECOTIDE [Concomitant]
     Indication: ASTHMA
     Route: 055

REACTIONS (7)
  - AMENORRHOEA [None]
  - DRUG INTERACTION [None]
  - ECTOPIC PREGNANCY [None]
  - HAEMOGLOBIN DECREASED [None]
  - NO THERAPEUTIC RESPONSE [None]
  - PREGNANCY WITH IMPLANT CONTRACEPTIVE [None]
  - SELF-MEDICATION [None]
